FAERS Safety Report 6327947-3 (Version None)
Quarter: 2009Q3

REPORT INFORMATION
  Report Type: 
  Country: None (occurrence: None)
  Receive Date: 20090825
  Receipt Date: 20080805
  Transmission Date: 20100115
  Serious: No
  Sender: FDA-Public Use
  Company Number: US-ABBOTT-08P-163-0469118-00

PATIENT
  Sex: Female

DRUGS (2)
  1. LEVOTHYROXINE SODIUM [Suspect]
     Indication: HYPOTHYROIDISM
     Route: 048
     Dates: start: 20080201, end: 20080602
  2. LEVOTHYROXINE SODIUM [Suspect]
     Route: 048
     Dates: start: 20080603

REACTIONS (1)
  - NONSPECIFIC REACTION [None]
